FAERS Safety Report 8840050 (Version 1)
Quarter: 2012Q4

REPORT INFORMATION
  Report Type: Spontaneous
  Country: US (occurrence: None)
  Receive Date: 20121011
  Receipt Date: 20121011
  Transmission Date: 20130627
  Serious: Yes (Death)
  Sender: FDA-Public Use
  Company Number: 1210-525

PATIENT
  Age: 88 Year
  Sex: Female

DRUGS (1)
  1. EYLEA [Suspect]
     Indication: EXUDATIVE SENILE MACULAR DEGENERATION OF RETINA
     Dosage: intravitreal
     Route: 042
     Dates: start: 20120210

REACTIONS (1)
  - Death [None]
